FAERS Safety Report 25554202 (Version 1)
Quarter: 2025Q3

REPORT INFORMATION
  Report Type: Spontaneous
  Country: EG (occurrence: EG)
  Receive Date: 20250715
  Receipt Date: 20250715
  Transmission Date: 20251021
  Serious: Yes (Other)
  Sender: NOVARTIS
  Company Number: EG-002147023-NVSC2025EG111419

PATIENT
  Age: 8 Year
  Sex: Male
  Weight: 25 kg

DRUGS (3)
  1. CYCLOSPORINE [Suspect]
     Active Substance: CYCLOSPORINE
     Indication: Prophylaxis against graft versus host disease
     Dosage: 45 MG, Q12H (ORAL SOLUTION)
     Route: 065
     Dates: start: 20250429, end: 20250520
  2. CILASTATIN [Concomitant]
     Active Substance: CILASTATIN
     Indication: Febrile neutropenia
     Dosage: 350 MG, QID
     Route: 042
     Dates: start: 20250514, end: 20250520
  3. IMIPRAMINE [Concomitant]
     Active Substance: IMIPRAMINE
     Indication: Febrile neutropenia
     Dosage: 350 MG, QID
     Route: 042
     Dates: start: 20250514, end: 20250520

REACTIONS (1)
  - Generalised tonic-clonic seizure [Recovered/Resolved]

NARRATIVE: CASE EVENT DATE: 20250520
